FAERS Safety Report 8436130-7 (Version None)
Quarter: 2012Q2

REPORT INFORMATION
  Report Type: 
  Country: None (occurrence: None)
  Receive Date: 20120614
  Receipt Date: 20120611
  Transmission Date: 20120825
  Serious: Yes (Hospitalization, Other)
  Sender: FDA-Public Use
  Company Number: NL-ROCHE-1077429

PATIENT
  Sex: Female

DRUGS (5)
  1. LEVOTHYROXINE SODIUM [Concomitant]
     Indication: THYROID DISORDER
  2. CLONAZEPAM [Suspect]
     Indication: NEURALGIA
     Route: 048
     Dates: start: 20120525, end: 20120605
  3. COUMARIN [Concomitant]
     Indication: ANTICOAGULANT THERAPY
  4. AMLODIPINE [Concomitant]
     Indication: BLOOD PRESSURE
  5. SYMBICORT [Concomitant]
     Indication: ASTHMA

REACTIONS (2)
  - ASTHMA [None]
  - ATRIAL FIBRILLATION [None]
